FAERS Safety Report 6638417-7 (Version None)
Quarter: 2010Q1

REPORT INFORMATION
  Report Type: 
  Country: None (occurrence: None)
  Receive Date: 20100316
  Receipt Date: 20100316
  Transmission Date: 20100710
  Serious: Yes (Hospitalization)
  Sender: FDA-Public Use
  Company Number: None

PATIENT
  Age: 29 Year
  Sex: Female
  Weight: 68 kg

DRUGS (1)
  1. SULFASALAZINE UNK UNK [Suspect]
     Indication: RHEUMATOID ARTHRITIS
     Dosage: ORAL 047
     Route: 048

REACTIONS (12)
  - ABDOMINAL PAIN [None]
  - ARTHRALGIA [None]
  - COAGULOPATHY [None]
  - HAEMODYNAMIC INSTABILITY [None]
  - HEADACHE [None]
  - JAUNDICE [None]
  - MALAISE [None]
  - MENTAL STATUS CHANGES [None]
  - MULTI-ORGAN FAILURE [None]
  - NAUSEA [None]
  - PYREXIA [None]
  - RASH [None]
